FAERS Safety Report 6368503-0 (Version None)
Quarter: 2009Q3

REPORT INFORMATION
  Report Type: 
  Country: None (occurrence: None)
  Receive Date: 20090922
  Receipt Date: 20090911
  Transmission Date: 20100115
  Serious: Yes (Hospitalization)
  Sender: FDA-Public Use
  Company Number: B0588760A

PATIENT
  Sex: Female
  Weight: 60 kg

DRUGS (2)
  1. MALARONE [Suspect]
     Indication: MALARIA PROPHYLAXIS
     Dosage: 1TAB PER DAY
     Route: 048
     Dates: start: 20090711, end: 20090813
  2. TIORFAN [Concomitant]
     Dosage: 3CAP PER DAY
     Route: 048
     Dates: start: 20090701, end: 20090811

REACTIONS (9)
  - GASTROINTESTINAL DISORDER [None]
  - HAEMOLYTIC ANAEMIA [None]
  - HYPOKALAEMIA [None]
  - PROTEIN TOTAL INCREASED [None]
  - PYREXIA [None]
  - RETICULOCYTOSIS [None]
  - THROMBOCYTOPENIA [None]
  - TRANSAMINASES INCREASED [None]
  - WHITE BLOOD CELL COUNT DECREASED [None]
